FAERS Safety Report 5318016-X (Version None)
Quarter: 2007Q2

REPORT INFORMATION
  Report Type: 
  Country: None (occurrence: None)
  Receive Date: 20070504
  Receipt Date: 20070504
  Transmission Date: 20071010
  Serious: No
  Sender: FDA-Public Use
  Company Number: None

PATIENT
  Age: 84 Year
  Sex: Female
  Weight: 59.4212 kg

DRUGS (1)
  1. WARFARIN SODIUM [Suspect]
     Indication: ATRIAL FIBRILLATION
     Dosage: 6 MG ON MON AND 4.5 ALL OTHER DAYS PO
     Route: 048
     Dates: start: 20050101, end: 20070130

REACTIONS (2)
  - HAEMATOMA [None]
  - HAEMOTHORAX [None]
